FAERS Safety Report 14018107 (Version 1)
Quarter: 2017Q3

REPORT INFORMATION
  Report Type: Report from Study
  Country: US (occurrence: US)
  Receive Date: 20170928
  Receipt Date: 20170928
  Transmission Date: 20171128
  Serious: Yes (Other)
  Sender: FDA-Public Use
  Company Number: US-ROCHE-1911546

PATIENT
  Age: 67 Year
  Sex: Female
  Weight: 96.7 kg

DRUGS (2)
  1. ESBRIET [Suspect]
     Active Substance: PIRFENIDONE
     Indication: IDIOPATHIC PULMONARY FIBROSIS
     Route: 048
     Dates: start: 20170127
  2. ESBRIET [Suspect]
     Active Substance: PIRFENIDONE
     Dosage: TAKING 3 CAPSULES 3 TIMES PER DAY?THERAPY DATE: 12/JUL/2017
     Route: 048
     Dates: start: 201702

REACTIONS (13)
  - Abdominal discomfort [Not Recovered/Not Resolved]
  - Malaise [Recovered/Resolved]
  - Respiratory disorder [Recovered/Resolved with Sequelae]
  - Fatigue [Recovered/Resolved with Sequelae]
  - Diverticulum [Not Recovered/Not Resolved]
  - Gastric disorder [Recovered/Resolved with Sequelae]
  - Diverticulitis [Recovered/Resolved with Sequelae]
  - Dyspepsia [Recovered/Resolved with Sequelae]
  - Diverticulitis [Recovered/Resolved]
  - Bruxism [Not Recovered/Not Resolved]
  - Nausea [Not Recovered/Not Resolved]
  - Fatigue [Not Recovered/Not Resolved]
  - Appetite disorder [Recovered/Resolved]

NARRATIVE: CASE EVENT DATE: 201702
